FAERS Safety Report 13484830 (Version 3)
Quarter: 2017Q2

REPORT INFORMATION
  Report Type: Spontaneous
  Country: US (occurrence: US)
  Receive Date: 20170426
  Receipt Date: 20170605
  Transmission Date: 20170830
  Serious: No
  Sender: FDA-Public Use
  Company Number: US-PFIZER INC-2017181076

PATIENT
  Age: 54 Year
  Sex: Male
  Weight: 84 kg

DRUGS (2)
  1. ADVIL [Suspect]
     Active Substance: IBUPROFEN
     Indication: BACK PAIN
     Dosage: MAYBE 2 TO 4 CAPSULES A WEEK
     Route: 048
     Dates: start: 201611
  2. ADVIL [Suspect]
     Active Substance: IBUPROFEN
     Dosage: 70 MG, DAILY
     Dates: end: 2017

REACTIONS (4)
  - Dysgeusia [Unknown]
  - Product physical issue [Unknown]
  - Product taste abnormal [Unknown]
  - Poor quality drug administered [Unknown]

NARRATIVE: CASE EVENT DATE: 2016
